FAERS Safety Report 8501348-1 (Version None)
Quarter: 2012Q3

REPORT INFORMATION
  Report Type: 
  Country: None (occurrence: None)
  Receive Date: 20120710
  Receipt Date: 20120628
  Transmission Date: 20120928
  Serious: Yes (Congenital Anomaly)
  Sender: FDA-Public Use
  Company Number: DE-TEVA-345945GER

PATIENT
  Age: 0 Year
  Sex: Female

DRUGS (12)
  1. VITAMIN B-12 [Concomitant]
     Route: 064
  2. BUDESONIDE [Suspect]
     Route: 064
  3. CELESTAN [Concomitant]
     Indication: MATERNAL THERAPY TO ENHANCE FOETAL LUNG MATURITY
     Route: 064
  4. NIFICAL-TROPFEN [Concomitant]
     Route: 064
  5. ALBUTEROL SULATE [Suspect]
     Route: 064
  6. BUDENOFALK [Concomitant]
     Route: 064
  7. FEMIBION SCHWANGERSCHAFT 1 [Concomitant]
     Indication: PROPHYLAXIS OF NEURAL TUBE DEFECT
     Route: 064
  8. SCHUSSLER SALZE [Concomitant]
     Route: 064
  9. PARTUSISTEN [Concomitant]
     Route: 064
  10. PROGESTERONE [Concomitant]
     Route: 064
  11. BUSCOPAN [Concomitant]
     Route: 064
  12. CEFUROXIME [Concomitant]
     Route: 064

REACTIONS (2)
  - PULMONARY ARTERY STENOSIS [None]
  - ATRIAL SEPTAL DEFECT [None]
